FAERS Safety Report 14539955 (Version 1)
Quarter: 2018Q1

REPORT INFORMATION
  Report Type: Spontaneous
  Country: US (occurrence: US)
  Receive Date: 20180215
  Receipt Date: 20180215
  Transmission Date: 20180509
  Serious: Yes (Other)
  Sender: FDA-Public Use
  Company Number: None

PATIENT
  Sex: Female
  Weight: 71.21 kg

DRUGS (2)
  1. LEMOTRINGE [Concomitant]
  2. PARAGARD T 380A [Suspect]
     Active Substance: COPPER
     Indication: CONTRACEPTION
     Dates: start: 20180207, end: 20180214

REACTIONS (1)
  - Seizure [None]

NARRATIVE: CASE EVENT DATE: 20180210
